FAERS Safety Report 21849463 (Version 4)
Quarter: 2023Q1

REPORT INFORMATION
  Report Type: Spontaneous
  Country: US (occurrence: US)
  Receive Date: 20230111
  Receipt Date: 20230317
  Transmission Date: 20230418
  Serious: Yes (Other)
  Sender: FDA-Public Use
  Company Number: US-BAYER-2023P002212

PATIENT
  Age: 35 Year
  Sex: Male

DRUGS (4)
  1. JIVI [Suspect]
     Active Substance: DAMOCTOCOG ALFA PEGOL
     Dosage: 5000 IU
     Route: 042
     Dates: end: 20230207
  2. JIVI [Suspect]
     Active Substance: DAMOCTOCOG ALFA PEGOL
     Dosage: 5000 IU
     Route: 042
     Dates: start: 202302
  3. JIVI [Suspect]
     Active Substance: DAMOCTOCOG ALFA PEGOL
     Dosage: 1 DF, TO TREAT LEFT ELBOW PAIN AND BLEEDING
  4. JIVI [Suspect]
     Active Substance: DAMOCTOCOG ALFA PEGOL
     Dosage: 1 DF, FOR THE LEFT ANKLE BLEED TREATMENT

REACTIONS (8)
  - Haemarthrosis [Recovered/Resolved]
  - Haemarthrosis [Recovered/Resolved]
  - Haemarthrosis [None]
  - Arthralgia [Recovered/Resolved]
  - Arthralgia [Recovered/Resolved]
  - Illness [None]
  - Product dose omission issue [None]
  - Product dose omission issue [None]

NARRATIVE: CASE EVENT DATE: 20230102
